FAERS Safety Report 20357843 (Version 1)
Quarter: 2022Q1

REPORT INFORMATION
  Report Type: Spontaneous
  Country: US (occurrence: US)
  Receive Date: 20220120
  Receipt Date: 20220120
  Transmission Date: 20220423
  Serious: No
  Sender: FDA-Public Use
  Company Number: US-NOVOPROD-846080

PATIENT
  Age: 68 Year
  Sex: Female

DRUGS (1)
  1. OZEMPIC [Suspect]
     Active Substance: SEMAGLUTIDE
     Indication: Type 2 diabetes mellitus
     Dosage: 0.25 MG, QW
     Route: 058
     Dates: start: 20210829, end: 202108

REACTIONS (4)
  - Hot flush [Not Recovered/Not Resolved]
  - Dysgeusia [Not Recovered/Not Resolved]
  - Blood glucose increased [Recovered/Resolved]
  - Drug effect faster than expected [Unknown]

NARRATIVE: CASE EVENT DATE: 20210801
